FAERS Safety Report 21881379 (Version 2)
Quarter: 2023Q1

REPORT INFORMATION
  Report Type: Spontaneous
  Country: US (occurrence: US)
  Receive Date: 20230119
  Receipt Date: 20230216
  Transmission Date: 20230418
  Serious: Yes (Other)
  Sender: FDA-Public Use
  Company Number: US-MALLINCKRODT-T202300110

PATIENT
  Sex: Male

DRUGS (1)
  1. H.P. ACTHAR [Suspect]
     Active Substance: CORTICOTROPIN
     Indication: Punctate keratitis
     Dosage: 1 MILLILITER (80 UNITS), TWICE A WEEK (MONDAY AND THURSDAY MORNINGS)
     Route: 058
     Dates: start: 202211

REACTIONS (2)
  - Surgery [Unknown]
  - Illness [Unknown]
